FAERS Safety Report 25182873 (Version 2)
Quarter: 2025Q2

REPORT INFORMATION
  Report Type: Report from Study
  Country: US (occurrence: US)
  Receive Date: 20250410
  Receipt Date: 20250520
  Transmission Date: 20250717
  Serious: Yes (Other)
  Sender: ALEXION PHARMACEUTICALS
  Company Number: US-AstraZeneca-CH-00842863A

PATIENT
  Age: 55 Year

DRUGS (1)
  1. ACALABRUTINIB [Suspect]
     Active Substance: ACALABRUTINIB
     Indication: Chronic lymphocytic leukaemia
     Dosage: 100 MILLIGRAM, BID

REACTIONS (12)
  - Neuropathy peripheral [Unknown]
  - White blood cell count decreased [Unknown]
  - Anxiety [Unknown]
  - Fatigue [Unknown]
  - Feeling jittery [Unknown]
  - Oropharyngeal pain [Unknown]
  - Sneezing [Unknown]
  - Cough [Unknown]
  - Nasal congestion [Unknown]
  - Rhinorrhoea [Unknown]
  - Bone pain [Recovering/Resolving]
  - Headache [Unknown]
